FAERS Safety Report 18343838 (Version 1)
Quarter: 2020Q4

REPORT INFORMATION
  Report Type: Spontaneous
  Country: FR (occurrence: FR)
  Receive Date: 20201005
  Receipt Date: 20201005
  Transmission Date: 20210114
  Serious: Yes (Hospitalization)
  Sender: FDA-Public Use
  Company Number: FR-HIKMA PHARMACEUTICALS USA INC.-FR-H14001-20-52233

PATIENT
  Age: 56 Year
  Sex: Female
  Weight: 80 kg

DRUGS (4)
  1. ACICLOVIR [Suspect]
     Active Substance: ACYCLOVIR
     Indication: ORAL HERPES
     Route: 042
     Dates: start: 20200828, end: 20200906
  2. AUGMENTIN [Suspect]
     Active Substance: AMOXICILLIN\CLAVULANATE POTASSIUM
     Indication: KLEBSIELLA INFECTION
     Route: 042
     Dates: start: 20200825, end: 20200904
  3. HEPARIN [Concomitant]
     Active Substance: HEPARIN SODIUM
     Indication: PULMONARY EMBOLISM
     Dosage: UNKNOWN
     Route: 042
     Dates: start: 20200824
  4. TIENAM [Suspect]
     Active Substance: CILASTATIN SODIUM\IMIPENEM
     Indication: KLEBSIELLA INFECTION
     Route: 042
     Dates: start: 20200822, end: 20200825

REACTIONS (2)
  - Eosinophilia [Recovered/Resolved]
  - Rash maculo-papular [Recovered/Resolved]

NARRATIVE: CASE EVENT DATE: 20200904
